FAERS Safety Report 9286224 (Version 1)
Quarter: 2013Q2

REPORT INFORMATION
  Report Type: Report from Study
  Country: GB (occurrence: GB)
  Receive Date: 20130513
  Receipt Date: 20130513
  Transmission Date: 20140414
  Serious: Yes (Other)
  Sender: FDA-Public Use
  Company Number: GB-GLAXOSMITHKLINE-B0843346C

PATIENT
  Age: 46 Year
  Sex: Male

DRUGS (4)
  1. PAZOPANIB [Suspect]
     Indication: METASTATIC RENAL CELL CARCINOMA
     Dosage: 800MG PER DAY
     Dates: start: 20110426
  2. AMLODIPINE [Concomitant]
  3. BENDROFLUMETHIAZIDE [Concomitant]
  4. BISOPROLOL [Concomitant]

REACTIONS (4)
  - Vomiting [Recovered/Resolved]
  - Muscle strain [Recovered/Resolved]
  - Pain [Recovered/Resolved]
  - Painful respiration [Recovered/Resolved]
